FAERS Safety Report 23714052 (Version 1)
Quarter: 2024Q2

REPORT INFORMATION
  Report Type: Report from Study
  Country: US (occurrence: US)
  Receive Date: 20240405
  Receipt Date: 20240405
  Transmission Date: 20240716
  Serious: Yes (Death)
  Sender: FDA-Public Use
  Company Number: US-TAIHOP-2024-002186

PATIENT
  Age: 47 Year
  Sex: Female

DRUGS (1)
  1. LONSURF [Suspect]
     Active Substance: TIPIRACIL HYDROCHLORIDE\TRIFLURIDINE
     Indication: Colon cancer
     Dosage: CYCLE 1,?FORM STRENGTH: 15MG AND 20MG
     Route: 048
     Dates: start: 20240301

REACTIONS (4)
  - Death [Fatal]
  - Nausea [Unknown]
  - Disease progression [Unknown]
  - Pain [Unknown]

NARRATIVE: CASE EVENT DATE: 20240326
